FAERS Safety Report 5233966-0 (Version None)
Quarter: 2007Q1

REPORT INFORMATION
  Report Type: 
  Country: None (occurrence: None)
  Receive Date: 20070208
  Receipt Date: 20070130
  Transmission Date: 20070707
  Serious: Yes (Hospitalization, Other)
  Sender: FDA-Public Use
  Company Number: FR-PFIZER INC-2006116674

PATIENT
  Sex: Female
  Weight: 40 kg

DRUGS (2)
  1. GENOTONORM [Suspect]
     Indication: HYPOPITUITARISM
     Dates: start: 19990626, end: 20050901
  2. GENOTONORM [Suspect]
     Dates: start: 20060705, end: 20060901

REACTIONS (1)
  - RENAL CANCER METASTATIC [None]
